FAERS Safety Report 16230526 (Version 1)
Quarter: 2019Q2

REPORT INFORMATION
  Report Type: Report from Study
  Country: JP (occurrence: JP)
  Receive Date: 20190423
  Receipt Date: 20190423
  Transmission Date: 20190711
  Serious: Yes (Other)
  Sender: FDA-Public Use
  Company Number: JP-VIFOR (INTERNATIONAL) INC.-VIT-2017-08786

PATIENT
  Age: 54 Year
  Sex: Male
  Weight: 78 kg

DRUGS (14)
  1. PRECIPITATED CALCIUM CARBONATE [Concomitant]
     Active Substance: CALCIUM CARBONATE
     Indication: HYPERPHOSPHATAEMIA
     Route: 048
  2. ARTIST [Concomitant]
     Active Substance: CARVEDILOL
     Route: 048
     Dates: start: 20170417, end: 20180305
  3. VELPHORO [Suspect]
     Active Substance: FERRIC OXYHYDROXIDE
     Route: 048
     Dates: start: 20180108, end: 20180418
  4. GASTER [Concomitant]
     Active Substance: FAMOTIDINE
     Route: 048
  5. ARTIST [Concomitant]
     Active Substance: CARVEDILOL
     Route: 048
     Dates: end: 20170416
  6. ARTIST [Concomitant]
     Active Substance: CARVEDILOL
     Route: 048
     Dates: start: 20180305
  7. FLUITRAN [Concomitant]
     Active Substance: TRICHLORMETHIAZIDE
     Route: 048
  8. VELPHORO [Suspect]
     Active Substance: FERRIC OXYHYDROXIDE
     Route: 048
     Dates: start: 20170529, end: 20171224
  9. ASPENON [Concomitant]
     Active Substance: APRINDINE HYDROCHLORIDE
     Route: 048
  10. VELPHORO [Suspect]
     Active Substance: FERRIC OXYHYDROXIDE
     Indication: HYPERPHOSPHATAEMIA
     Route: 048
     Dates: start: 20170306, end: 20170528
  11. OXAROL [Concomitant]
     Active Substance: MAXACALCITOL
     Dosage: MON, FRI AND WED 5-2.5
  12. FOSRENOL [Concomitant]
     Active Substance: LANTHANUM CARBONATE
     Indication: HYPERPHOSPHATAEMIA
     Route: 048
  13. BAYASPIRIN [Concomitant]
     Active Substance: ASPIRIN
     Route: 048
  14. FEBURIC [Concomitant]
     Active Substance: FEBUXOSTAT
     Route: 048

REACTIONS (5)
  - Shunt occlusion [Recovered/Resolved]
  - Cholecystitis chronic [Recovering/Resolving]
  - Haemoglobin increased [Recovering/Resolving]
  - Blood iron increased [Recovered/Resolved]
  - Haematocrit increased [Recovering/Resolving]

NARRATIVE: CASE EVENT DATE: 20170417
